FAERS Safety Report 7463950-8 (Version None)
Quarter: 2011Q2

REPORT INFORMATION
  Report Type: 
  Country: None (occurrence: None)
  Receive Date: 20110506
  Receipt Date: 20110425
  Transmission Date: 20111010
  Serious: Yes (Other)
  Sender: FDA-Public Use
  Company Number: US-GENENTECH-317793

PATIENT

DRUGS (3)
  1. TREANDA [Suspect]
     Indication: WALDENSTROM'S MACROGLOBULINAEMIA
     Dosage: UNK
     Route: 042
  2. RITUXAN [Suspect]
     Indication: WALDENSTROM'S MACROGLOBULINAEMIA
     Dosage: UNK
     Route: 042
  3. ARZERRA [Suspect]
     Indication: WALDENSTROM'S MACROGLOBULINAEMIA
     Dosage: UNK
     Route: 042

REACTIONS (2)
  - INFUSION RELATED REACTION [None]
  - MYELODYSPLASTIC SYNDROME [None]
